FAERS Safety Report 5093579-0 (Version None)
Quarter: 2006Q3

REPORT INFORMATION
  Report Type: 
  Country: None (occurrence: None)
  Receive Date: 20060829
  Receipt Date: 20060815
  Transmission Date: 20061208
  Serious: Yes (Death)
  Sender: FDA-Public Use
  Company Number: US200606002396

PATIENT
  Age: 76 Year
  Sex: Female
  Weight: 107 kg

DRUGS (8)
  1. HUMALOG [Suspect]
     Dosage: 16 U EACH MORNING
     Dates: end: 20060217
  2. PLAVIX [Concomitant]
  3. ACCUPRIL [Concomitant]
  4. ASPIRIN [Concomitant]
  5. SYNTHROID [Concomitant]
  6. ALLOPURINOL [Concomitant]
  7. LASIX [Concomitant]
  8. OXYGEN [Concomitant]

REACTIONS (1)
  - DEATH [None]
